FAERS Safety Report 5225945-4 (Version None)
Quarter: 2007Q1

REPORT INFORMATION
  Report Type: 
  Country: None (occurrence: None)
  Receive Date: 20070201
  Receipt Date: 20070117
  Transmission Date: 20070707
  Serious: Yes (Hospitalization)
  Sender: FDA-Public Use
  Company Number: US-AMGEN-US207437

PATIENT
  Sex: Female

DRUGS (1)
  1. ENBREL [Suspect]
     Indication: RHEUMATOID ARTHRITIS
     Route: 058
     Dates: start: 20000101

REACTIONS (6)
  - ARTHROSCOPY [None]
  - DRUG INEFFECTIVE [None]
  - HIP ARTHROPLASTY [None]
  - INJECTION SITE ERYTHEMA [None]
  - JOINT INJURY [None]
  - MUSCULAR WEAKNESS [None]
